FAERS Safety Report 19174502 (Version 1)
Quarter: 2021Q2

REPORT INFORMATION
  Report Type: Spontaneous
  Country: US (occurrence: US)
  Receive Date: 20210423
  Receipt Date: 20210423
  Transmission Date: 20210717
  Serious: Yes (Life-Threatening, Other)
  Sender: FDA-Public Use
  Company Number: US-FOUNDATIONCONSUMERHC-2021-US-008573

PATIENT
  Age: 28 Year
  Sex: Female
  Weight: 47.63 kg

DRUGS (4)
  1. MULTIVITAMIN [Concomitant]
     Active Substance: VITAMINS
  2. PLAN B ONE?STEP [Suspect]
     Active Substance: LEVONORGESTREL
     Indication: POST COITAL CONTRACEPTION
     Dosage: 1.5 MG
     Route: 048
     Dates: start: 20210101, end: 20210101
  3. METHOTREXATE. [Suspect]
     Active Substance: METHOTREXATE
     Dosage: 2 INJECTIONS
     Route: 030
     Dates: start: 20210126, end: 20210202
  4. OMEPREZOLE [Concomitant]
     Active Substance: OMEPRAZOLE
     Dosage: AS NEEDED

REACTIONS (8)
  - Emotional disorder [Not Recovered/Not Resolved]
  - Vaginal haemorrhage [Recovered/Resolved]
  - Ruptured ectopic pregnancy [Unknown]
  - Salpingectomy [Unknown]
  - Abdominal pain [Recovered/Resolved]
  - Ectopic pregnancy [Unknown]
  - Internal haemorrhage [Unknown]
  - Drug ineffective [Unknown]

NARRATIVE: CASE EVENT DATE: 20210101
